FAERS Safety Report 9326724 (Version 1)
Quarter: 2013Q2

REPORT INFORMATION
  Report Type: Spontaneous
  Country: GB (occurrence: None)
  Receive Date: 20130530
  Receipt Date: 20130530
  Transmission Date: 20140414
  Serious: Yes (Death, Hospitalization)
  Sender: FDA-Public Use
  Company Number: 2013-01173

PATIENT
  Sex: Male

DRUGS (3)
  1. SIMVASTATIN [Suspect]
     Indication: PRODUCT USED FOR UNKNOWN INDICATION
  2. ATORVASTATIN [Suspect]
     Indication: PRODUCT USED FOR UNKNOWN INDICATION
  3. EZETIMIBE [Suspect]
     Indication: PRODUCT USED FOR UNKNOWN INDICATION
     Dates: end: 200811

REACTIONS (41)
  - Myopathy [None]
  - Neuromyopathy [None]
  - Muscle spasms [None]
  - Activities of daily living impaired [None]
  - Discomfort [None]
  - Neck pain [None]
  - Musculoskeletal pain [None]
  - Pain [None]
  - Hypotonia [None]
  - Alopecia [None]
  - Psychiatric symptom [None]
  - Anxiety [None]
  - Asthenia [None]
  - Blood creatine phosphokinase increased [None]
  - Depression [None]
  - Fatigue [None]
  - Asthenia [None]
  - Obsessive thoughts [None]
  - Dyspnoea [None]
  - Back pain [None]
  - Pain in extremity [None]
  - Dysphonia [None]
  - General physical health deterioration [None]
  - Dysphonia [None]
  - Suffocation feeling [None]
  - Chromaturia [None]
  - Urine abnormality [None]
  - Decreased appetite [None]
  - Muscle atrophy [None]
  - Muscle twitching [None]
  - Emotional disorder [None]
  - Rash pruritic [None]
  - Dry mouth [None]
  - Mouth ulceration [None]
  - Peripheral coldness [None]
  - Abnormal dreams [None]
  - Posture abnormal [None]
  - Muscular weakness [None]
  - Motor neurone disease [None]
  - Respiratory failure [None]
  - Myocardial infarction [None]
